FAERS Safety Report 5166491-6 (Version None)
Quarter: 2006Q4

REPORT INFORMATION
  Report Type: 
  Country: None (occurrence: None)
  Receive Date: 20061129
  Receipt Date: 20061114
  Transmission Date: 20070319
  Serious: Yes (Hospitalization)
  Sender: FDA-Public Use
  Company Number: A-JP2006-13588

PATIENT
  Age: 48 Year
  Sex: Female
  Weight: 43 kg

DRUGS (9)
  1. TRACLEER [Suspect]
     Indication: PULMONARY HYPERTENSION
     Dosage: 62.5 MG, BID, ORAL
     Route: 048
     Dates: start: 20060812, end: 20061004
  2. METHYLPREDNISOLONE [Concomitant]
  3. FAMOTIDINE [Concomitant]
  4. FUROSEMIDE [Concomitant]
  5. ALFACALCIDOL (ALFACALCIDOL) [Concomitant]
  6. SULFAMETHOXAZOLE + TRIMETHOPRIM [Concomitant]
  7. LANSOPRAZOLE [Concomitant]
  8. PREDNISOLONE [Concomitant]
  9. OXYGEN (OXYGEN) [Concomitant]

REACTIONS (5)
  - ALANINE AMINOTRANSFERASE INCREASED [None]
  - ASPARTATE AMINOTRANSFERASE INCREASED [None]
  - BLOOD ALKALINE PHOSPHATASE INCREASED [None]
  - GAMMA-GLUTAMYLTRANSFERASE INCREASED [None]
  - HEPATIC FUNCTION ABNORMAL [None]
